FAERS Safety Report 16570811 (Version 7)
Quarter: 2022Q3

REPORT INFORMATION
  Report Type: Other
  Country: CA (occurrence: CA)
  Receive Date: 20190715
  Receipt Date: 20220811
  Transmission Date: 20221026
  Serious: Yes (Hospitalization, Other)
  Sender: FDA-Public Use
  Company Number: CA-TITAN PHARMACEUTICALS-2019TAN00030

PATIENT
  Age: 1 Day
  Sex: Male
  Weight: 2 kg

DRUGS (9)
  1. BUPRENORPHINE [Suspect]
     Active Substance: BUPRENORPHINE
     Indication: Drug dependence
     Dosage: 22 MG, 1X/DAY
     Route: 064
  2. BUPRENORPHINE HYDROCHLORIDE\NALOXONE [Suspect]
     Active Substance: BUPRENORPHINE HYDROCHLORIDE\NALOXONE
     Indication: Drug dependence
     Dosage: 22 MG, 1X/DAY
     Route: 064
  3. ABILIFY [Suspect]
     Active Substance: ARIPIPRAZOLE
     Indication: Product used for unknown indication
     Dosage: 5 MG, 1X/DAY
     Route: 064
  4. DIAZEPAM [Suspect]
     Active Substance: DIAZEPAM
     Indication: Product used for unknown indication
     Dosage: 40 MG, 1X/DAY
     Route: 064
  5. NALOXONE HYDROCHLORIDE [Suspect]
     Active Substance: NALOXONE HYDROCHLORIDE
     Indication: Drug dependence
     Dosage: 22 MG, 1X/DAY
     Route: 063
  6. NICOTINE [Suspect]
     Active Substance: NICOTINE
     Indication: Product used for unknown indication
     Dosage: 10 MG
     Route: 064
  7. NICOTINE [Suspect]
     Active Substance: NICOTINE
     Indication: Smoking cessation therapy
     Dosage: 10 MG
     Route: 064
  8. NICOTINE [Suspect]
     Active Substance: NICOTINE
     Dosage: 10 MG
  9. VYVANSE [Suspect]
     Active Substance: LISDEXAMFETAMINE DIMESYLATE
     Indication: Product used for unknown indication
     Dosage: 10 MG, 1X/DAY
     Route: 064

REACTIONS (9)
  - Foetal distress syndrome [Recovered/Resolved]
  - Premature baby [Recovered/Resolved]
  - Jaundice neonatal [Recovered/Resolved]
  - Breech presentation [Recovered/Resolved]
  - Foetal exposure during pregnancy [Recovered/Resolved]
  - Rhesus incompatibility [Unknown]
  - Transfusion [Unknown]
  - Drug withdrawal syndrome neonatal [Recovered/Resolved]
  - Exposure via breast milk [Recovered/Resolved]
